FAERS Safety Report 9720933 (Version 1)
Quarter: 2013Q4

REPORT INFORMATION
  Report Type: Spontaneous
  Country: US (occurrence: US)
  Receive Date: 20131129
  Receipt Date: 20131129
  Transmission Date: 20140711
  Serious: Yes (Hospitalization)
  Sender: FDA-Public Use
  Company Number: US-BRISTOL-MYERS SQUIBB COMPANY-19836055

PATIENT
  Age: 86 Year
  Sex: Female
  Weight: 51.7 kg

DRUGS (3)
  1. COUMADIN [Suspect]
  2. SYNTHROID [Concomitant]
  3. CRESTOR [Concomitant]

REACTIONS (1)
  - Coronary artery disease [Unknown]
